FAERS Safety Report 7608995-X (Version None)
Quarter: 2011Q3

REPORT INFORMATION
  Report Type: 
  Country: None (occurrence: None)
  Receive Date: 20110714
  Receipt Date: 20110707
  Transmission Date: 20111222
  Serious: Yes (Hospitalization)
  Sender: FDA-Public Use
  Company Number: FR-PFIZER INC-2011152567

PATIENT
  Age: 23 Year
  Sex: Female

DRUGS (4)
  1. METHADONE [Concomitant]
     Indication: DRUG ABUSE
     Dosage: 110MG DAILY
  2. XANAX [Suspect]
     Dosage: 45 DF, 1X/DAY
     Route: 048
     Dates: start: 20110117
  3. ESCITALOPRAM OXALATE [Concomitant]
     Indication: DEPRESSION
     Dosage: 20 MG, UNK
  4. IMOVANE [Suspect]
     Dosage: 20 DF, 1X/DAY
     Route: 048
     Dates: start: 20110117

REACTIONS (1)
  - POISONING DELIBERATE [None]
